FAERS Safety Report 13096810 (Version 28)
Quarter: 2018Q3

REPORT INFORMATION
  Report Type: Report from Study
  Country: DK (occurrence: DK)
  Receive Date: 20170109
  Receipt Date: 20180729
  Transmission Date: 20181010
  Serious: Yes (Hospitalization)
  Sender: FDA-Public Use
  Company Number: PHHO2016DK014327

PATIENT
  Age: 76 Year
  Sex: Female
  Weight: 55.2 kg

DRUGS (52)
  1. DABRAFENIB [Suspect]
     Active Substance: DABRAFENIB
     Dosage: 150 MG, BID
     Route: 048
     Dates: start: 20160908, end: 20160925
  2. TRAMETINIB [Suspect]
     Active Substance: TRAMETINIB
     Dosage: 2 MG, QD
     Route: 048
     Dates: start: 20160925, end: 20161222
  3. TRAMETINIB [Suspect]
     Active Substance: TRAMETINIB
     Dosage: 2 MG, QD
     Route: 048
     Dates: start: 20161231
  4. PLACEBO [Suspect]
     Active Substance: UNSPECIFIED INGREDIENT
     Dosage: UNK
     Route: 042
     Dates: start: 20160907, end: 20160907
  5. PLACEBO [Suspect]
     Active Substance: UNSPECIFIED INGREDIENT
     Dosage: UNK
     Route: 042
     Dates: start: 20161222, end: 20161222
  6. ESTRADIOL. [Concomitant]
     Active Substance: ESTRADIOL
     Indication: PRODUCT USED FOR UNKNOWN INDICATION
     Dosage: 10 UG (MICORGRAM)
     Route: 065
     Dates: start: 20140204
  7. CODEINE PHOSPHATE [Concomitant]
     Active Substance: CODEINE PHOSPHATE
     Indication: PAIN
     Dosage: UNK
     Route: 065
  8. BRENTACORT [Concomitant]
     Indication: DRY SKIN
  9. BRENTACORT [Concomitant]
     Indication: PRURITUS
  10. CLOBETASOL PROPIONATE. [Concomitant]
     Active Substance: CLOBETASOL PROPIONATE
     Indication: RASH MACULO-PAPULAR
     Dosage: UNK
     Route: 065
  11. DABRAFENIB [Suspect]
     Active Substance: DABRAFENIB
     Dosage: 150 MG, ONCE/SINGLE
     Route: 048
     Dates: start: 20161009, end: 20161009
  12. PLACEBO [Suspect]
     Active Substance: UNSPECIFIED INGREDIENT
     Dosage: UNK
     Dates: start: 20161020, end: 20161202
  13. IODIXANOL. [Concomitant]
     Active Substance: IODIXANOL
     Indication: PROPHYLAXIS
     Dosage: UNK
     Route: 065
  14. FLUCONAZOLE. [Concomitant]
     Active Substance: FLUCONAZOLE
     Indication: URINARY TRACT INFECTION
     Route: 065
  15. FLUCONAZOLE. [Concomitant]
     Active Substance: FLUCONAZOLE
     Indication: PRURITUS
  16. DABRAFENIB [Suspect]
     Active Substance: DABRAFENIB
     Indication: METASTATIC MALIGNANT MELANOMA
     Dosage: 150 MG, BID
     Route: 048
     Dates: start: 20160615, end: 20160907
  17. DABRAFENIB [Suspect]
     Active Substance: DABRAFENIB
     Dosage: 150 MG, BID
     Route: 048
     Dates: start: 20160927, end: 20161008
  18. DABRAFENIB [Suspect]
     Active Substance: DABRAFENIB
     Dosage: 150 MG, ONCE/SINGLE
     Route: 048
     Dates: start: 20161229, end: 20161229
  19. DABRAFENIB [Suspect]
     Active Substance: DABRAFENIB
     Dosage: 100 MG, BID
     Route: 048
     Dates: start: 20161231, end: 20170317
  20. DABRAFENIB [Suspect]
     Active Substance: DABRAFENIB
     Dosage: 100 MG, BID
     Route: 048
     Dates: start: 20170407
  21. TRAMETINIB [Suspect]
     Active Substance: TRAMETINIB
     Indication: METASTATIC MALIGNANT MELANOMA
     Dosage: 2 MG, QD
     Route: 048
     Dates: start: 20160617, end: 20160907
  22. TRAMETINIB [Suspect]
     Active Substance: TRAMETINIB
     Dosage: 2 MG, QD
     Route: 048
     Dates: start: 20161229, end: 20161229
  23. PLACEBO [Suspect]
     Active Substance: UNSPECIFIED INGREDIENT
     Dosage: UNK
     Route: 042
     Dates: start: 20160926, end: 20160926
  24. CALCIUM/VITAMIN D [Concomitant]
     Active Substance: CALCIUM\VITAMIN D
     Indication: PRODUCT USED FOR UNKNOWN INDICATION
     Dosage: 1 DF, UNK
     Route: 065
     Dates: start: 20151204
  25. VALACYCLOVIR HYDROCHLORIDE. [Concomitant]
     Active Substance: VALACYCLOVIR HYDROCHLORIDE
     Indication: HERPES VIRUS INFECTION
     Route: 065
  26. BETNOVAT [Concomitant]
     Active Substance: BETAMETHASONE
     Indication: DRY SKIN
     Dosage: UNK
     Route: 065
  27. ACYCLOVIR. [Concomitant]
     Active Substance: ACYCLOVIR
     Indication: HERPES VIRUS INFECTION
     Dosage: UNK
     Route: 065
  28. ACYCLOVIR. [Concomitant]
     Active Substance: ACYCLOVIR
     Indication: ECZEMA INFECTED
  29. BETNOVAT [Concomitant]
     Active Substance: BETAMETHASONE
     Indication: PRURITUS
  30. DABRAFENIB [Suspect]
     Active Substance: DABRAFENIB
     Dosage: 100 MG, BID
     Route: 048
     Dates: start: 20170318, end: 20170406
  31. PLACEBO [Suspect]
     Active Substance: UNSPECIFIED INGREDIENT
     Dosage: UNK
     Route: 042
     Dates: start: 20170113, end: 20170224
  32. PLACEBO [Suspect]
     Active Substance: UNSPECIFIED INGREDIENT
     Dosage: UNK
     Dates: start: 20170407
  33. PLACEBO [Suspect]
     Active Substance: UNSPECIFIED INGREDIENT
     Dosage: UNK
     Dates: start: 20170428
  34. PSYLLIUM HUSK. [Concomitant]
     Active Substance: PSYLLIUM HUSK
     Indication: PRODUCT USED FOR UNKNOWN INDICATION
     Dosage: 1 G, UNK
     Route: 065
     Dates: start: 20151204
  35. BRENTACORT [Concomitant]
     Indication: FUNGAL INFECTION
     Route: 065
  36. ACETAMINOPHEN. [Concomitant]
     Active Substance: ACETAMINOPHEN
     Indication: PAIN
     Dosage: UNK
     Route: 065
  37. DABRAFENIB [Suspect]
     Active Substance: DABRAFENIB
     Dosage: 150 MG, ONCE/SINGLE
     Route: 048
     Dates: start: 20160926, end: 20160926
  38. TRAMETINIB [Suspect]
     Active Substance: TRAMETINIB
     Dosage: 2 MG, QD
     Route: 048
     Dates: start: 20160908, end: 20160924
  39. CETIRIZINE HYDROCHLORIDE. [Concomitant]
     Active Substance: CETIRIZINE HYDROCHLORIDE
     Indication: PRURITUS
     Route: 065
  40. DABRAFENIB [Suspect]
     Active Substance: DABRAFENIB
     Dosage: 150 MG, BID
     Route: 048
     Dates: start: 20161010, end: 20161222
  41. PLACEBO [Suspect]
     Active Substance: UNSPECIFIED INGREDIENT
     Indication: METASTATIC MALIGNANT MELANOMA
     Dosage: UNK
     Route: 042
     Dates: start: 20160615, end: 20160817
  42. NITROFURANTOIN. [Concomitant]
     Active Substance: NITROFURANTOIN
     Indication: URINARY TRACT INFECTION
     Route: 065
  43. FLUCONAZOLE. [Concomitant]
     Active Substance: FLUCONAZOLE
     Indication: DRY SKIN
  44. BRENTACORT [Concomitant]
     Indication: ECZEMA
  45. FEXOFENADINE [Concomitant]
     Active Substance: FEXOFENADINE\FEXOFENADINE HYDROCHLORIDE
     Indication: RASH MACULO-PAPULAR
     Dosage: UNK
     Route: 065
  46. DABRAFENIB [Suspect]
     Active Substance: DABRAFENIB
     Dosage: 150 MG, BID
     Route: 048
     Dates: start: 20161223, end: 20161228
  47. DABRAFENIB [Suspect]
     Active Substance: DABRAFENIB
     Dosage: 100 MG, ONCE/SINGLE
     Route: 048
     Dates: start: 20161230, end: 20161230
  48. TRAMETINIB [Suspect]
     Active Substance: TRAMETINIB
     Dosage: 2 MG, QD
     Route: 048
     Dates: start: 20161223, end: 20161228
  49. PLACEBO [Suspect]
     Active Substance: UNSPECIFIED INGREDIENT
     Dosage: UNK
     Route: 042
     Dates: start: 20170317
  50. OMEGA?3 MARINE TRIGLYCERIDES [Concomitant]
     Active Substance: FISH OIL
     Indication: PRODUCT USED FOR UNKNOWN INDICATION
     Dosage: 1000 MG, UNK
     Route: 048
     Dates: start: 20151204, end: 20160924
  51. ACETAMINOPHEN. [Concomitant]
     Active Substance: ACETAMINOPHEN
     Indication: PROPHYLAXIS
  52. BETNOVAT [Concomitant]
     Active Substance: BETAMETHASONE
     Indication: ECZEMA

REACTIONS (3)
  - Pyrexia [Recovered/Resolved]
  - Influenza like illness [Recovered/Resolved]
  - Pyrexia [Recovered/Resolved]

NARRATIVE: CASE EVENT DATE: 20160922
